FAERS Safety Report 22611440 (Version 1)
Quarter: 2023Q2

REPORT INFORMATION
  Report Type: Spontaneous
  Country: US (occurrence: US)
  Receive Date: 20230616
  Receipt Date: 20230616
  Transmission Date: 20230721
  Serious: No
  Sender: FDA-Public Use
  Company Number: US-BRISTOL-MYERS SQUIBB COMPANY-2023-085235

PATIENT
  Age: 59 Year
  Sex: Female
  Weight: 79.83 kg

DRUGS (2)
  1. REVLIMID [Suspect]
     Active Substance: LENALIDOMIDE
     Indication: Plasma cell myeloma
     Route: 048
     Dates: start: 20210503
  2. DIFLUCAN [Concomitant]
     Active Substance: FLUCONAZOLE
     Indication: Vulvovaginal mycotic infection

REACTIONS (2)
  - Ear infection [Recovered/Resolved]
  - Haematuria [Recovering/Resolving]

NARRATIVE: CASE EVENT DATE: 20230601
